FAERS Safety Report 7484515-8 (Version None)
Quarter: 2011Q2

REPORT INFORMATION
  Report Type: 
  Country: None (occurrence: None)
  Receive Date: 20110517
  Receipt Date: 20110509
  Transmission Date: 20111010
  Serious: No
  Sender: FDA-Public Use
  Company Number: US-BIOGENIDEC-2011BI007363

PATIENT
  Age: 34 Year
  Sex: Female

DRUGS (5)
  1. TYSABRI [Suspect]
     Indication: MULTIPLE SCLEROSIS
     Route: 042
     Dates: start: 20081006, end: 20090429
  2. SOLU-MEDROL [Concomitant]
     Indication: MULTIPLE SCLEROSIS
     Route: 042
     Dates: start: 20020101, end: 20110101
  3. TYSABRI [Suspect]
     Route: 042
     Dates: start: 20110404
  4. MS CONTIN [Concomitant]
     Indication: PAIN
  5. OXYCODONE HCL [Concomitant]
     Indication: PAIN

REACTIONS (10)
  - HEADACHE [None]
  - ASTHENIA [None]
  - MULTIPLE SCLEROSIS [None]
  - FEELING HOT [None]
  - DYSURIA [None]
  - VOMITING [None]
  - MUSCLE TIGHTNESS [None]
  - BAND SENSATION [None]
  - DIZZINESS [None]
  - URINARY TRACT INFECTION [None]
